FAERS Safety Report 6394497-8 (Version None)
Quarter: 2009Q4

REPORT INFORMATION
  Report Type: 
  Country: None (occurrence: None)
  Receive Date: 20091009
  Receipt Date: 20090930
  Transmission Date: 20100525
  Serious: Yes (Other)
  Sender: FDA-Public Use
  Company Number: US-JNJFOC-20091000656

PATIENT
  Sex: Female
  Weight: 87.09 kg

DRUGS (9)
  1. INFLIXIMAB [Suspect]
     Indication: PSORIASIS
     Route: 042
     Dates: start: 20020101
  2. ARAVA [Suspect]
     Indication: DRUG USE FOR UNKNOWN INDICATION
     Route: 048
  3. HUMIRA [Suspect]
     Indication: DRUG USE FOR UNKNOWN INDICATION
     Route: 050
  4. ATENOLOL [Concomitant]
     Route: 048
  5. OMEPRAZOLE [Concomitant]
     Route: 048
  6. HYDROCHLOROTHIAZIDE [Concomitant]
     Route: 048
  7. LODINE [Concomitant]
     Route: 048
  8. ASPIRIN [Concomitant]
     Route: 048
  9. SORIATANE [Concomitant]
     Route: 048

REACTIONS (1)
  - SQUAMOUS CELL CARCINOMA [None]
